FAERS Safety Report 7984395-8 (Version None)
Quarter: 2011Q4

REPORT INFORMATION
  Report Type: 
  Country: None (occurrence: None)
  Receive Date: 20111216
  Receipt Date: 20111208
  Transmission Date: 20120403
  Serious: Yes (Hospitalization, Other)
  Sender: FDA-Public Use
  Company Number: CA-UCBSA-031572

PATIENT
  Age: 45 Year
  Sex: Female
  Weight: 117.9 kg

DRUGS (11)
  1. ATENOLOL [Concomitant]
     Indication: CARDIAC DISORDER
  2. MELOXICAM [Concomitant]
     Indication: PAIN
  3. CIMZIA [Suspect]
     Dosage: DOSE PER INTAKE IS 200 MG
     Route: 058
     Dates: start: 20110303
  4. LISINOPRIL [Concomitant]
     Indication: CARDIAC DISORDER
  5. CIMZIA [Suspect]
     Route: 058
     Dates: start: 20110119, end: 20110101
  6. CIMZIA [Suspect]
     Indication: RHEUMATOID ARTHRITIS
     Route: 058
     Dates: start: 20101208, end: 20110105
  7. MELOXICAM [Concomitant]
     Indication: RHEUMATOID ARTHRITIS
  8. TYLENOLD WITH CODEINE [Concomitant]
     Indication: RHEUMATOID ARTHRITIS
  9. TYLENOLD WITH CODEINE [Concomitant]
     Indication: PAIN
  10. CREAM FOR PSORIASIS [Concomitant]
     Indication: PSORIASIS
  11. NEXIUM [Concomitant]

REACTIONS (2)
  - ECZEMA [None]
  - CELLULITIS [None]
